FAERS Safety Report 7559251-X (Version None)
Quarter: 2011Q2

REPORT INFORMATION
  Report Type: 
  Country: None (occurrence: None)
  Receive Date: 20110617
  Receipt Date: 20110617
  Transmission Date: 20111010
  Serious: No
  Sender: FDA-Public Use
  Company Number: None

PATIENT
  Age: 63 Year
  Sex: Female

DRUGS (2)
  1. CIPROFLOXACIN HCL [Suspect]
     Dates: start: 20100321, end: 20100327
  2. FRAGMIN [Suspect]
     Dates: start: 20100322, end: 20100327

REACTIONS (9)
  - BRADYCARDIA [None]
  - OESOPHAGEAL SPASM [None]
  - BLOOD ALKALINE PHOSPHATASE INCREASED [None]
  - ASPARTATE AMINOTRANSFERASE INCREASED [None]
  - HAEMATOCRIT DECREASED [None]
  - PAIN [None]
  - ALANINE AMINOTRANSFERASE INCREASED [None]
  - IMPAIRED GASTRIC EMPTYING [None]
  - LIVER INJURY [None]
